FAERS Safety Report 10344404 (Version 1)
Quarter: 2014Q3

REPORT INFORMATION
  Report Type: Report from Study
  Country: CA (occurrence: CA)
  Receive Date: 20140728
  Receipt Date: 20140728
  Transmission Date: 20150326
  Serious: Yes (Other)
  Sender: FDA-Public Use
  Company Number: CA-BRISTOL-MYERS SQUIBB COMPANY-21235650

PATIENT
  Sex: Female

DRUGS (14)
  1. NOVOLIN [Concomitant]
     Active Substance: INSULIN HUMAN
  2. VITAMIN D [Concomitant]
     Active Substance: CHOLECALCIFEROL
  3. CODEINE CONTIN [Concomitant]
     Active Substance: CODEINE SULFATE
  4. SULFASALAZINE. [Concomitant]
     Active Substance: SULFASALAZINE
  5. METFORMIN [Concomitant]
     Active Substance: METFORMIN HYDROCHLORIDE
  6. FUROSEMIDE. [Concomitant]
     Active Substance: FUROSEMIDE
  7. ACEBUTOLOL [Concomitant]
     Active Substance: ACEBUTOLOL
  8. FISH OIL [Concomitant]
     Active Substance: FISH OIL
  9. OMEGA-3 ACIDS [Concomitant]
     Active Substance: OMEGA-3 FATTY ACIDS
  10. ABATACEPT [Suspect]
     Active Substance: ABATACEPT
     Indication: RHEUMATOID ARTHRITIS
     Dosage: 1000 MG, Q4WK
     Route: 042
     Dates: start: 201402
  11. SPIRONOLACTONE. [Concomitant]
     Active Substance: SPIRONOLACTONE
  12. CALCIUM [Concomitant]
     Active Substance: CALCIUM
  13. FOLIC ACID. [Concomitant]
     Active Substance: FOLIC ACID
  14. ATACAND [Concomitant]
     Active Substance: CANDESARTAN CILEXETIL

REACTIONS (1)
  - Cataract operation [Unknown]
